FAERS Safety Report 8308308-4 (Version None)
Quarter: 2012Q2

REPORT INFORMATION
  Report Type: 
  Country: None (occurrence: None)
  Receive Date: 20120424
  Receipt Date: 20050708
  Transmission Date: 20120825
  Serious: Yes (Hospitalization)
  Sender: FDA-Public Use
  Company Number: US-TEVA-2009008701

PATIENT
  Age: 38 Year
  Sex: Female

DRUGS (1)
  1. PROVIGIL [Suspect]
     Dosage: 700 MILLIGRAM;
     Route: 048

REACTIONS (2)
  - DRUG PRESCRIBING ERROR [None]
  - URINARY TRACT INFECTION [None]
